FAERS Safety Report 5393644-4 (Version None)
Quarter: 2007Q3

REPORT INFORMATION
  Report Type: 
  Country: None (occurrence: None)
  Receive Date: 20070723
  Receipt Date: 20070202
  Transmission Date: 20080115
  Serious: No
  Sender: FDA-Public Use
  Company Number: A0623732A

PATIENT
  Age: 68 Year
  Sex: Female

DRUGS (3)
  1. AVANDIA [Suspect]
     Dosage: 4MG PER DAY
     Route: 048
     Dates: start: 20051201
  2. THYROID TAB [Concomitant]
  3. TYLENOL (CAPLET) [Concomitant]

REACTIONS (5)
  - BLOOD CHOLESTEROL INCREASED [None]
  - FATIGUE [None]
  - HAEMATOCHEZIA [None]
  - NASOPHARYNGITIS [None]
  - SOMNOLENCE [None]
